FAERS Safety Report 7834585-X (Version None)
Quarter: 2011Q4

REPORT INFORMATION
  Report Type: 
  Country: None (occurrence: None)
  Receive Date: 20111024
  Receipt Date: 20111011
  Transmission Date: 20120403
  Serious: Yes (Other)
  Sender: FDA-Public Use
  Company Number: DE-CELGENEUS-062-21660-11101282

PATIENT
  Sex: Female

DRUGS (1)
  1. ABRAXANE [Suspect]
     Indication: OVARIAN CANCER
     Route: 065

REACTIONS (1)
  - RENAL FAILURE [None]
